FAERS Safety Report 5110897-8 (Version None)
Quarter: 2006Q3

REPORT INFORMATION
  Report Type: 
  Country: None (occurrence: None)
  Receive Date: 20060919
  Receipt Date: 20060905
  Transmission Date: 20061208
  Serious: Yes (Hospitalization)
  Sender: FDA-Public Use
  Company Number: CA-2006-026069

PATIENT
  Age: 45 Year
  Sex: Female

DRUGS (8)
  1. BETASERON [Suspect]
     Indication: RELAPSING-REMITTING MULTIPLE SCLEROSIS
     Dosage: 8 MIU, EVERY 2D, SUBCUTANEOUS
     Route: 058
     Dates: start: 20010628
  2. GABAPENTIN [Concomitant]
  3. HYDROMORPH CONTIN (HYDROMORPHONE HYDROCHLORIDE) [Concomitant]
  4. DILAUDID [Concomitant]
  5. METFORMIN HCL [Concomitant]
  6. FUROSEMIDE [Concomitant]
  7. OXAZEPAM [Concomitant]
  8. AMITRIPTYLINE HCL [Concomitant]

REACTIONS (3)
  - DYSPNOEA [None]
  - GENERALISED OEDEMA [None]
  - HEPATIC NEOPLASM [None]
